FAERS Safety Report 21143541 (Version 1)
Quarter: 2022Q3

REPORT INFORMATION
  Report Type: Spontaneous
  Country: JP (occurrence: JP)
  Receive Date: 20220728
  Receipt Date: 20220728
  Transmission Date: 20221026
  Serious: Yes (Other)
  Sender: FDA-Public Use
  Company Number: JP-PFIZER INC-PV202200030140

PATIENT
  Age: 54 Year
  Sex: Female
  Weight: 45.3 kg

DRUGS (8)
  1. DOCETAXEL [Suspect]
     Active Substance: DOCETAXEL
     Indication: Hypopharyngeal cancer stage IV
     Dosage: 75 MG/M2, ON DAY 1
     Route: 042
  2. CISPLATIN [Suspect]
     Active Substance: CISPLATIN
     Indication: Hypopharyngeal cancer stage IV
     Dosage: 75 MG/M2, ON DAY 1
     Route: 042
  3. CISPLATIN [Suspect]
     Active Substance: CISPLATIN
     Dosage: 100 MG/M2, ON DAY 1
     Route: 042
  4. FLUOROURACIL [Suspect]
     Active Substance: FLUOROURACIL
     Indication: Hypopharyngeal cancer stage IV
     Dosage: 24-H CONTINUOUS INFUSION BY PUMP 750 MG/M2 ON DAYS 1-5
  5. FLUOROURACIL [Suspect]
     Active Substance: FLUOROURACIL
     Dosage: 24 H CONTINUOUS INFUSION BY PUMP 750 MG/M2 ON DAYS 1 TO 5
  6. NIVOLUMAB [Suspect]
     Active Substance: NIVOLUMAB
     Indication: Hypopharyngeal cancer stage IV
     Dosage: 240 MG, EVERY 2 WEEKS
  7. CETUXIMAB [Suspect]
     Active Substance: CETUXIMAB
     Indication: Hypopharyngeal cancer stage IV
  8. AMLODIPINE [Concomitant]
     Active Substance: AMLODIPINE BESYLATE
     Indication: Hypertension
     Dosage: 7.5 MG, DAILY

REACTIONS (2)
  - Vasospasm [Recovered/Resolved]
  - Off label use [Unknown]
